FAERS Safety Report 18876452 (Version 1)
Quarter: 2021Q1

REPORT INFORMATION
  Report Type: Spontaneous
  Country: ES (occurrence: ES)
  Receive Date: 20210210
  Receipt Date: 20210210
  Transmission Date: 20210420
  Serious: Yes (Other)
  Sender: FDA-Public Use
  Company Number: ES-PFIZER INC-2021098674

PATIENT
  Age: 65 Year
  Sex: Female
  Weight: 61 kg

DRUGS (14)
  1. ACTOCORTINA [Suspect]
     Active Substance: HYDROCORTISONE SODIUM PHOSPHATE
     Indication: PREMEDICATION
     Dosage: 200 MG, (200 MG, GIVEN TILL CUMULATIVE DOSE REACHED 3.75 MG/KG)
  2. TIMOGLOBULINA [ANTITHYMOCYTE IMMUNOGLOBULIN] [Suspect]
     Active Substance: THYMOCYTE IMMUNE GLOBULIN NOS
     Indication: LUNG TRANSPLANT REJECTION
     Dosage: 0.38 MG/KG, GIVEN UNTIL CUMULATIVE DOSE REACHED 3.75 MG/KG
     Route: 042
     Dates: end: 20140228
  3. TACROLIMUS. [Suspect]
     Active Substance: TACROLIMUS
     Dosage: UNK
  4. CERTICAN [Suspect]
     Active Substance: EVEROLIMUS
     Dosage: UNK, (GIVEN TILL CUMULATIVE DOSE REACHED 3.75 MG/KG)
  5. AZITHROMYCIN ANHYDROUS. [Suspect]
     Active Substance: AZITHROMYCIN ANHYDROUS
     Dosage: UNK
  6. POLARAMINE [Suspect]
     Active Substance: DEXCHLORPHENIRAMINE MALEATE
     Indication: PREMEDICATION
     Dosage: UNK, (GIVEN TILL CUMULATIVE DOSE REACHED 3.75 MG/KG
     Route: 042
  7. AMBISOME [Suspect]
     Active Substance: AMPHOTERICIN B
     Dosage: UNK, (GIVEN TILL CUMULATIVE DOSE REACHED 3.75 MG/KG)
  8. TIMOGLOBULINA [ANTITHYMOCYTE IMMUNOGLOBULIN] [Suspect]
     Active Substance: THYMOCYTE IMMUNE GLOBULIN NOS
     Dosage: 0.75 MG/KG, GIVEN UNTIL CUMULATIVE DOSE REACHED 3.75 MG/KG
     Route: 042
  9. PREDNISONE. [Suspect]
     Active Substance: PREDNISONE
     Dosage: UNK
  10. PRIMPERAN [Suspect]
     Active Substance: METOCLOPRAMIDE HYDROCHLORIDE
     Indication: PREMEDICATION
     Dosage: UNK
     Route: 042
  11. SEPTRIN [Suspect]
     Active Substance: SULFAMETHOXAZOLE\TRIMETHOPRIM
     Dosage: UNK, (GIVEN TILL CUMULATIVE DOSE REACHED 3.75 MG/KG
  12. OMEPRAZOLE. [Suspect]
     Active Substance: OMEPRAZOLE
     Dosage: UNK,  (GIVEN TILL CUMULATIVE DOSE REACHED 3.75 MG/KG)
  13. TIMOGLOBULINA [ANTITHYMOCYTE IMMUNOGLOBULIN] [Suspect]
     Active Substance: THYMOCYTE IMMUNE GLOBULIN NOS
     Dosage: 1.5 MG/KG, GIVEN UNTIL CUMULATIVE DOSE REACHED 3.75 MG/KG
     Route: 042
     Dates: start: 20140214
  14. PARACETAMOL [Suspect]
     Active Substance: ACETAMINOPHEN
     Indication: PREMEDICATION
     Dosage: UNK, (GIVEN TILL CUMULATIVE DOSE REACHED 3.75 MG/KG)
     Route: 042

REACTIONS (12)
  - Myelosuppression [Recovered/Resolved]
  - Vomiting [Recovered/Resolved]
  - Drug intolerance [Recovered/Resolved]
  - Oxygen saturation decreased [Recovered/Resolved]
  - Off label use [Unknown]
  - Dyspnoea [Recovered/Resolved]
  - Mouth ulceration [Recovered/Resolved]
  - Leukopenia [Recovered/Resolved]
  - Nausea [Recovered/Resolved]
  - Malaise [Recovered/Resolved]
  - Lymphopenia [Recovered/Resolved]
  - Feeling abnormal [Recovered/Resolved]

NARRATIVE: CASE EVENT DATE: 20140214
